FAERS Safety Report 25189556 (Version 1)
Quarter: 2025Q2

REPORT INFORMATION
  Report Type: Spontaneous
  Country: DE (occurrence: DE)
  Receive Date: 20250411
  Receipt Date: 20250411
  Transmission Date: 20250717
  Serious: No
  Sender: ASTELLAS
  Company Number: DE-ASTELLAS-2025-AER-018888

PATIENT
  Age: 7 Year
  Sex: Female

DRUGS (1)
  1. VESIKUR [Suspect]
     Active Substance: SOLIFENACIN SUCCINATE
     Indication: Product used for unknown indication
     Route: 048

REACTIONS (1)
  - Intercepted product prescribing error [Unknown]
